FAERS Safety Report 10449463 (Version 2)
Quarter: 2014Q3

REPORT INFORMATION
  Report Type: Spontaneous
  Country: JP (occurrence: JP)
  Receive Date: 20140912
  Receipt Date: 20140922
  Transmission Date: 20150326
  Serious: Yes (Other)
  Sender: FDA-Public Use
  Company Number: PHHY2011JP122857

PATIENT
  Age: 64 Year
  Sex: Female

DRUGS (4)
  1. GLIVEC [Suspect]
     Active Substance: IMATINIB MESYLATE
     Indication: CHRONIC MYELOID LEUKAEMIA
     Dosage: 400 MG, DAILY
     Dates: start: 20110101
  2. GLIVEC [Suspect]
     Active Substance: IMATINIB MESYLATE
     Dosage: 200 MG, DAILY
  3. INSULIN [Concomitant]
     Active Substance: INSULIN NOS
  4. DASATINIB [Suspect]
     Active Substance: DASATINIB

REACTIONS (5)
  - Hepatic function abnormal [Unknown]
  - Oedema [Recovered/Resolved]
  - Melaena [Unknown]
  - Myalgia [Recovered/Resolved]
  - Diabetes mellitus [Unknown]
